FAERS Safety Report 18648917 (Version 2)
Quarter: 2020Q4

REPORT INFORMATION
  Report Type: Spontaneous
  Country: US (occurrence: US)
  Receive Date: 20201222
  Receipt Date: 20201228
  Transmission Date: 20210114
  Serious: Yes (Death)
  Sender: FDA-Public Use
  Company Number: US-FRESENIUS MEDICAL CARE RENAL THERAPIES GROUP-FMC-2012-001569

PATIENT
  Age: 79 Year
  Sex: Male

DRUGS (23)
  1. NITROSTAT [Concomitant]
     Active Substance: NITROGLYCERIN
  2. SENNA [Concomitant]
     Active Substance: SENNA LEAF\SENNOSIDES\SENNOSIDES A AND B
  3. TERAZOSIN [Concomitant]
     Active Substance: TERAZOSIN HYDROCHLORIDE
  4. LASIX [Concomitant]
     Active Substance: FUROSEMIDE
  5. ISOSORBIDE. [Concomitant]
     Active Substance: ISOSORBIDE
  6. LEVEMIR [Concomitant]
     Active Substance: INSULIN DETEMIR
  7. GENTAMYCIN [Concomitant]
     Active Substance: GENTAMICIN
  8. FLUOXETINE [Concomitant]
     Active Substance: FLUOXETINE HYDROCHLORIDE
  9. ASPIRIN. [Concomitant]
     Active Substance: ASPIRIN
  10. MELATONIN [Concomitant]
     Active Substance: MELATONIN
  11. POTASSIUM CHLORIDE. [Concomitant]
     Active Substance: POTASSIUM CHLORIDE
  12. DELFLEX WITH DEXTROSE 1.5% LOW MAGNESIUM LOW CALCIUM [Suspect]
     Active Substance: CALCIUM CHLORIDE\DEXTROSE\MAGNESIUM CHLORIDE\SODIUM CHLORIDE\SODIUM LACTATE
     Indication: END STAGE RENAL DISEASE
     Dosage: FILL VOLUME 2500 ML, 4 EXCHANGES, LAST FILL 2500 ML, NO DAYTIME EXCHANGE, DWELL TIME 1.5 HOURS, SINC
     Route: 033
  13. DELFLEX WITH DEXTROSE 2.5% LOW MAGNESIUM LOW CALCIUM [Suspect]
     Active Substance: CALCIUM CHLORIDE\DEXTROSE\MAGNESIUM CHLORIDE\SODIUM CHLORIDE\SODIUM LACTATE
     Indication: END STAGE RENAL DISEASE
     Dosage: FILL VOLUME 2500 ML, 4 EXCHANGES, LAST FILL 2500 ML, NO DAYTIME EXCHANGE, DWELL TIME 1.5 HOURS, SINC
     Route: 033
  14. ALLOPURINOL. [Concomitant]
     Active Substance: ALLOPURINOL
  15. COLCHICINE. [Concomitant]
     Active Substance: COLCHICINE
  16. PREDNISONE. [Concomitant]
     Active Substance: PREDNISONE
  17. SIMVASTATIN. [Concomitant]
     Active Substance: SIMVASTATIN
  18. DELFLEX WITH DEXTROSE 4.25% LOW MAGNESIUM LOW CALCIUM [Suspect]
     Active Substance: CALCIUM CHLORIDE\DEXTROSE\MAGNESIUM CHLORIDE\SODIUM CHLORIDE\SODIUM LACTATE
     Indication: END STAGE RENAL DISEASE
     Dosage: FILL VOLUME 2500 ML, 4 EXCHANGES, LAST FILL 2500 ML, NO DAYTIME EXCHANGE, DWELL TIME 1.5 HOURS, SINC
     Route: 033
  19. AURYXIA [Concomitant]
     Active Substance: TETRAFERRIC TRICITRATE DECAHYDRATE
  20. MULTIVITAMIN [Concomitant]
     Active Substance: VITAMINS
  21. PRILOSEC [Concomitant]
     Active Substance: OMEPRAZOLE MAGNESIUM
  22. VITAMIN D3 [Concomitant]
     Active Substance: CHOLECALCIFEROL
  23. RENVELA [Concomitant]
     Active Substance: SEVELAMER CARBONATE

REACTIONS (1)
  - Cardiac arrest [Fatal]
